FAERS Safety Report 7887033-8 (Version None)
Quarter: 2011Q4

REPORT INFORMATION
  Report Type: 
  Country: None (occurrence: None)
  Receive Date: 20111102
  Receipt Date: 20110713
  Transmission Date: 20120403
  Serious: No
  Sender: FDA-Public Use
  Company Number: US-AMGEN-USASP2011035575

PATIENT
  Sex: Male

DRUGS (2)
  1. ENBREL [Suspect]
     Indication: PSORIATIC ARTHROPATHY
     Dosage: 50 MG, QWK
     Dates: start: 20031118
  2. ENBREL [Suspect]
     Indication: PSORIASIS

REACTIONS (6)
  - DRUG EFFECT DECREASED [None]
  - PSORIASIS [None]
  - HOT FLUSH [None]
  - DIARRHOEA [None]
  - PSORIATIC ARTHROPATHY [None]
  - HEPATIC ENZYME INCREASED [None]
